FAERS Safety Report 19462544 (Version 1)
Quarter: 2021Q2

REPORT INFORMATION
  Report Type: Report from Study
  Country: JP (occurrence: JP)
  Receive Date: 20210625
  Receipt Date: 20210625
  Transmission Date: 20210717
  Serious: Yes (Death, Other)
  Sender: FDA-Public Use
  Company Number: JP-BAUSCH-BL-2018-024726

PATIENT
  Age: 64 Year
  Sex: Male

DRUGS (11)
  1. DOVOBET [Concomitant]
     Active Substance: BETAMETHASONE\CALCIPOTRIENE
     Indication: PRODUCT USED FOR UNKNOWN INDICATION
     Dates: start: 20180820
  2. REBAMIPIDE [Concomitant]
     Active Substance: REBAMIPIDE
     Indication: PRODUCT USED FOR UNKNOWN INDICATION
  3. LUMICEF [Suspect]
     Active Substance: BRODALUMAB
     Dosage: SYRINGE, ONCE EVERY 4?5 WEEKS
     Route: 058
     Dates: start: 20191029
  4. LUMICEF [Suspect]
     Active Substance: BRODALUMAB
     Dosage: SYRINGE
     Route: 058
     Dates: start: 20180104, end: 20180510
  5. LUMICEF [Suspect]
     Active Substance: BRODALUMAB
     Dosage: SYRINGE
     Route: 058
     Dates: start: 20180604, end: 20191007
  6. CLOPIDOGREL (CLOPIDOGREL BISULFATE) [Concomitant]
     Indication: PRODUCT USED FOR UNKNOWN INDICATION
  7. AMLODIPINE (AMLODIPINE BESILATE) [Concomitant]
     Indication: PRODUCT USED FOR UNKNOWN INDICATION
  8. IFENPRODIL TARTRATE [Concomitant]
     Active Substance: IFENPRODIL TARTRATE
     Indication: PRODUCT USED FOR UNKNOWN INDICATION
  9. LUMICEF [Suspect]
     Active Substance: BRODALUMAB
     Indication: PSORIASIS
     Dosage: SYRINGE
     Route: 058
     Dates: start: 20171218, end: 20171225
  10. FAMOTIDINE. [Concomitant]
     Active Substance: FAMOTIDINE
     Indication: PRODUCT USED FOR UNKNOWN INDICATION
     Route: 048
  11. CEFDINIR. [Concomitant]
     Active Substance: CEFDINIR
     Indication: PRODUCT USED FOR UNKNOWN INDICATION
     Dates: start: 20180521, end: 20180831

REACTIONS (2)
  - Lung adenocarcinoma [Fatal]
  - Furuncle [Recovered/Resolved]

NARRATIVE: CASE EVENT DATE: 201804
